FAERS Safety Report 8173456-9 (Version None)
Quarter: 2012Q1

REPORT INFORMATION
  Report Type: 
  Country: None (occurrence: None)
  Receive Date: 20120223
  Receipt Date: 20120214
  Transmission Date: 20120608
  Serious: Yes (Other)
  Sender: FDA-Public Use
  Company Number: ACO_29408_2012

PATIENT
  Sex: Female

DRUGS (9)
  1. TOPIRAMATE [Concomitant]
  2. CELLCEPT /01275102/ (MYCOPHENOLATE MOFETIL) [Concomitant]
  3. ATENOLOL [Concomitant]
  4. VALIUM [Concomitant]
  5. GABAPENTIN [Concomitant]
  6. EFFEXOR XR [Concomitant]
  7. CELEBREX [Concomitant]
  8. AMPYRA [Suspect]
     Indication: PRODUCT USED FOR UNKNOWN INDICATION
     Dosage: 10 MG, BID
     Dates: start: 20110701
  9. PEPCID /00706001/ (FAMOTIDINE) [Concomitant]

REACTIONS (1)
  - CONVULSION [None]
